FAERS Safety Report 4435517-7 (Version None)
Quarter: 2004Q3

REPORT INFORMATION
  Report Type: 
  Country: None (occurrence: None)
  Receive Date: 20040827
  Receipt Date: 20040819
  Transmission Date: 20050211
  Serious: Yes (Life-Threatening, Hospitalization)
  Sender: FDA-Public Use
  Company Number: CA-MERCK-0408CAN00081

PATIENT
  Age: 70 Year
  Sex: Male

DRUGS (6)
  1. ACETAMINOPHEN AND CODEINE PHOSPHATE [Concomitant]
     Indication: ARTHRITIS
     Route: 065
     Dates: start: 19800101
  2. PROSCAR [Suspect]
     Indication: BENIGN PROSTATIC HYPERPLASIA
     Route: 048
     Dates: start: 20040518
  3. GLYBURIDE [Concomitant]
     Indication: DIABETES MELLITUS
     Route: 065
     Dates: start: 19850101
  4. KETOPROFEN [Concomitant]
     Indication: ARTHRITIS
     Route: 065
     Dates: start: 19800101
  5. METFORMIN HYDROCHLORIDE [Concomitant]
     Indication: DIABETES MELLITUS
     Route: 065
     Dates: start: 19850101, end: 20040620
  6. OMEPRAZOLE [Concomitant]
     Indication: GASTROOESOPHAGEAL REFLUX DISEASE
     Route: 065
     Dates: start: 19850101

REACTIONS (2)
  - CHEST PAIN [None]
  - DYSPNOEA [None]
